FAERS Safety Report 4482472-X (Version None)
Quarter: 2004Q4

REPORT INFORMATION
  Report Type: 
  Country: None (occurrence: None)
  Receive Date: 20041022
  Receipt Date: 20041005
  Transmission Date: 20050328
  Serious: Yes (Other)
  Sender: FDA-Public Use
  Company Number: JP-GLAXOSMITHKLINE-B0347813A

PATIENT
  Sex: Male

DRUGS (2)
  1. MODACIN [Suspect]
     Indication: PERITONITIS
     Route: 042
  2. CEFOTIAM HYDROCHLORIDE [Concomitant]
     Route: 042

REACTIONS (3)
  - ALANINE AMINOTRANSFERASE INCREASED [None]
  - ASPARTATE AMINOTRANSFERASE INCREASED [None]
  - LIVER DISORDER [None]
